FAERS Safety Report 9431760 (Version 1)
Quarter: 2013Q3

REPORT INFORMATION
  Report Type: Report from Study
  Country: US (occurrence: US)
  Receive Date: 20130731
  Receipt Date: 20130731
  Transmission Date: 20140515
  Serious: Yes (Other)
  Sender: FDA-Public Use
  Company Number: US-ROCHE-1254025

PATIENT
  Sex: Female

DRUGS (5)
  1. XOLAIR [Suspect]
     Indication: PRODUCT USED FOR UNKNOWN INDICATION
     Route: 065
  2. VYVANSE [Concomitant]
  3. EFFEXOR [Concomitant]
  4. MELOXICAM [Concomitant]
     Indication: PAIN
  5. MAXALT [Concomitant]

REACTIONS (6)
  - Rhinitis [Unknown]
  - Urticaria [Unknown]
  - Fatigue [Unknown]
  - Vocal cord disorder [Unknown]
  - Mitral valve prolapse [Unknown]
  - Migraine [Unknown]
